FAERS Safety Report 15326006 (Version 1)
Quarter: 2018Q3

REPORT INFORMATION
  Report Type: Spontaneous
  Country: CN (occurrence: CN)
  Receive Date: 20180828
  Receipt Date: 20180828
  Transmission Date: 20181010
  Serious: Yes (Hospitalization)
  Sender: FDA-Public Use
  Company Number: CN-BAYER-2018-158040

PATIENT
  Age: 26 Year
  Sex: Female

DRUGS (1)
  1. AVELOX [Suspect]
     Active Substance: MOXIFLOXACIN HYDROCHLORIDE
     Indication: LUNG INFECTION
     Dosage: 0.4 G, UNK
     Dates: start: 20170207, end: 201802

REACTIONS (10)
  - Tinnitus [None]
  - Vomiting [None]
  - Tremor [Recovering/Resolving]
  - Palpitations [None]
  - Cough [None]
  - Nausea [None]
  - Hypoaesthesia [None]
  - Vision blurred [None]
  - Dizziness [Recovering/Resolving]
  - Myalgia [None]

NARRATIVE: CASE EVENT DATE: 20170208
